FAERS Safety Report 15931093 (Version 2)
Quarter: 2019Q1

REPORT INFORMATION
  Report Type: Spontaneous
  Country: US (occurrence: US)
  Receive Date: 20190207
  Receipt Date: 20190213
  Transmission Date: 20190417
  Serious: Yes (Other)
  Sender: FDA-Public Use
  Company Number: US-AMGEN-USASP2019017040

PATIENT
  Sex: Male

DRUGS (3)
  1. ENBREL [Suspect]
     Active Substance: ETANERCEPT
     Indication: PRODUCT USED FOR UNKNOWN INDICATION
     Dosage: 25 MG, 2 TIMES/WK
     Route: 058
  2. XELJANZ [Concomitant]
     Active Substance: TOFACITINIB CITRATE
     Indication: INFLAMMATION
     Dosage: UNK
  3. ENBREL [Suspect]
     Active Substance: ETANERCEPT
     Dosage: 25 MG, QWK
     Route: 058
     Dates: end: 201608

REACTIONS (3)
  - Chronic cutaneous lupus erythematosus [Unknown]
  - Arthralgia [Unknown]
  - Latent tuberculosis [Unknown]
